FAERS Safety Report 18199177 (Version 2)
Quarter: 2020Q3

REPORT INFORMATION
  Report Type: Spontaneous
  Country: US (occurrence: US)
  Receive Date: 20200826
  Receipt Date: 20200831
  Transmission Date: 20201103
  Serious: Yes (Hospitalization, Other)
  Sender: FDA-Public Use
  Company Number: US-TEVA-2020-US-1818291

PATIENT
  Age: 42 Year
  Sex: Male

DRUGS (14)
  1. CARBIDOPA? LEVODOPA [Suspect]
     Active Substance: CARBIDOPA\LEVODOPA
     Indication: PARKINSONISM
     Dosage: 4.5 DOSAGE FORMS DAILY; 1.5 TABLET; THREE TIMES DAILY
     Route: 048
  2. PRAMIPEXOLE. [Suspect]
     Active Substance: PRAMIPEXOLE
     Indication: PARKINSONISM
     Dosage: 3 MILLIGRAM DAILY; THREE TIMES PER DAY
     Route: 065
  3. TRIHEXYPHENIDYL [Concomitant]
     Active Substance: TRIHEXYPHENIDYL
     Indication: OSMOTIC DEMYELINATION SYNDROME
     Dosage: 6 MILLIGRAM DAILY; THREE TIMES PER DAY
     Route: 065
  4. CARBIDOPA? LEVODOPA [Suspect]
     Active Substance: CARBIDOPA\LEVODOPA
     Indication: OSMOTIC DEMYELINATION SYNDROME
     Dosage: 3 DOSAGE FORMS DAILY; 1 TABLET; THREE TIMES DAILY
     Route: 048
  5. VALPROIC ACID. [Concomitant]
     Active Substance: VALPROIC ACID
     Indication: COMPULSIVE SHOPPING
     Route: 065
  6. NEUPRO [Suspect]
     Active Substance: ROTIGOTINE
     Indication: OSMOTIC DEMYELINATION SYNDROME
     Route: 062
  7. PRAMIPEXOLE. [Suspect]
     Active Substance: PRAMIPEXOLE
     Indication: OSMOTIC DEMYELINATION SYNDROME
     Dosage: 1.5 MILLIGRAM DAILY; THREE TIMES PER DAY
     Route: 065
  8. NEUPRO [Suspect]
     Active Substance: ROTIGOTINE
     Indication: PARKINSONISM
  9. CARBIDOPA? LEVODOPA [Suspect]
     Active Substance: CARBIDOPA\LEVODOPA
     Dosage: 20 TO 30 TABLETS FOR SUICIDE ATTEMPT
     Route: 048
  10. DESMOPRESSIN [Concomitant]
     Active Substance: DESMOPRESSIN
     Indication: VON WILLEBRAND^S DISEASE
     Route: 065
  11. AMANTADINE. [Concomitant]
     Active Substance: AMANTADINE HYDROCHLORIDE
     Indication: OSMOTIC DEMYELINATION SYNDROME
     Dosage: 200 MILLIGRAM DAILY;
     Route: 065
  12. TRIHEXYPHENIDYL [Concomitant]
     Active Substance: TRIHEXYPHENIDYL
     Indication: PARKINSONISM
  13. LAMOTRIGINE. [Concomitant]
     Active Substance: LAMOTRIGINE
     Indication: COMPULSIVE SHOPPING
     Route: 065
  14. AMANTADINE. [Concomitant]
     Active Substance: AMANTADINE HYDROCHLORIDE
     Indication: PARKINSONISM

REACTIONS (5)
  - Drug ineffective [Unknown]
  - Rebound effect [Unknown]
  - Dysarthria [Unknown]
  - Parkinsonism [Unknown]
  - Intentional overdose [Unknown]
